FAERS Safety Report 6083982-4 (Version None)
Quarter: 2009Q1

REPORT INFORMATION
  Report Type: 
  Country: None (occurrence: None)
  Receive Date: 20090217
  Receipt Date: 20090216
  Transmission Date: 20090719
  Serious: Yes (Other)
  Sender: FDA-Public Use
  Company Number: 09-077

PATIENT
  Age: 67 Year
  Sex: Female
  Weight: 247.2104 kg

DRUGS (3)
  1. ALEVE LIQUID GEL,            BAYER HEALTHCARE [Suspect]
     Indication: ARTHRITIS
     Dosage: 660-880 MG, DAILY, ORAL
     Route: 048
     Dates: start: 20000101
  2. GENUINE BAYER ASPIRIN, BAYER HEALTHCARE [Suspect]
     Indication: ARTHRITIS
     Dosage: 3250 MG, DAILY, ORAL
     Route: 048
     Dates: start: 19990101
  3. DILTIAZEM [Concomitant]

REACTIONS (5)
  - EYE HAEMORRHAGE [None]
  - HEADACHE [None]
  - MACULAR DEGENERATION [None]
  - VAGINAL HAEMORRHAGE [None]
  - VISUAL IMPAIRMENT [None]
